FAERS Safety Report 9162053 (Version 2)
Quarter: 2013Q1

REPORT INFORMATION
  Report Type: Spontaneous
  Country: US (occurrence: None)
  Receive Date: 20130225
  Receipt Date: 20130327
  Transmission Date: 20140127
  Serious: Yes (Hospitalization, Other)
  Sender: FDA-Public Use
  Company Number: CABO-13002372

PATIENT
  Age: 72 Year
  Sex: Male
  Weight: 99.8 kg

DRUGS (16)
  1. COMETRIQ [Suspect]
     Indication: THYROID CANCER
     Route: 048
     Dates: start: 20130212, end: 20130213
  2. COUMADIN (WARFARIN SODIUM) [Concomitant]
  3. ALLOPURINOL [Concomitant]
  4. MULTIVITAMIN (VITAMINS NOS) [Concomitant]
  5. ADVAIR (FLUTICASONE PROPIONATE, SALMETEROL XINAFOATE) [Concomitant]
  6. CITRACAL + D (CALCIUM CITRATE, ERGOCALCIFEROL) [Concomitant]
  7. DETROL (TOLTERODINE L-TARTRATE) [Concomitant]
  8. KLOR-CON (POTASSIUM CHLORIDE) [Concomitant]
  9. PRILOSEC [Concomitant]
  10. REMERON (MIRTAZAPINE) [Concomitant]
  11. SYNTHROID (LEVOTHYROXINE SODIUM) [Concomitant]
  12. METOPROLOL (METOPROLOL) [Concomitant]
  13. UROXATRAL (ALFUZOSIN HYDROCHLORIDE) [Concomitant]
  14. VITAMIN C [Concomitant]
  15. LISINOPRIL (LISINOPRIL) [Concomitant]
  16. ZOMETA (ZOLEDRONIC ACID) [Concomitant]

REACTIONS (8)
  - Pyrexia [None]
  - Chills [None]
  - Vomiting [None]
  - Dehydration [None]
  - International normalised ratio increased [None]
  - Dysgeusia [None]
  - Diarrhoea [None]
  - Pain [None]
